FAERS Safety Report 6137758-X (Version None)
Quarter: 2009Q1

REPORT INFORMATION
  Report Type: 
  Country: None (occurrence: None)
  Receive Date: 20090327
  Receipt Date: 20090313
  Transmission Date: 20090719
  Serious: No
  Sender: FDA-Public Use
  Company Number: 2009001947

PATIENT
  Sex: Male

DRUGS (3)
  1. FENTORA [Suspect]
     Indication: CANCER PAIN
     Dosage: 3200 MCG (800 MCG, 4 IN 1 AS REQUIRED), BU
     Route: 002
  2. ACTIQ [Suspect]
     Indication: CANCER PAIN
     Dosage: 9600 MCG (1600 MCG, 6 IN 1 D) ,BU
     Route: 002
  3. OXYCONTIN [Concomitant]

REACTIONS (1)
  - DRUG PRESCRIBING ERROR [None]
